FAERS Safety Report 17174884 (Version 4)
Quarter: 2020Q4

REPORT INFORMATION
  Report Type: Other
  Country: CA (occurrence: CA)
  Receive Date: 20191219
  Receipt Date: 20201019
  Transmission Date: 20210113
  Serious: Yes (Other)
  Sender: FDA-Public Use
  Company Number: CA-BECTON DICKINSON-2019BDN00429

PATIENT
  Age: 42 Year
  Sex: Female
  Weight: 81 kg

DRUGS (39)
  1. OXYCODONE [Suspect]
     Active Substance: OXYCODONE
  2. CETIRIZINE HYDROCHLORIDE. [Concomitant]
     Active Substance: CETIRIZINE HYDROCHLORIDE
  3. PANTOLOC [Concomitant]
     Active Substance: PANTOPRAZOLE SODIUM
  4. ACETAMINOPHEN. [Suspect]
     Active Substance: ACETAMINOPHEN
  5. ACETAMINOPHEN. [Suspect]
     Active Substance: ACETAMINOPHEN
  6. PREDNISONE. [Concomitant]
     Active Substance: PREDNISONE
  7. SALBUTAMOL [Concomitant]
     Active Substance: ALBUTEROL
  8. VITAMIN D3 [Concomitant]
     Active Substance: CHOLECALCIFEROL
  9. ARAVA [Suspect]
     Active Substance: LEFLUNOMIDE
  10. ETANERCEPT [Suspect]
     Active Substance: ETANERCEPT
  11. LEFLUNOMIDE. [Suspect]
     Active Substance: LEFLUNOMIDE
     Dosage: UNK
     Route: 048
  12. ORENCIA [Suspect]
     Active Substance: ABATACEPT
     Dosage: UNK
     Route: 042
  13. DESOGESTREL/ETHINYL ESTRADIOL [Concomitant]
     Active Substance: DESOGESTREL\ETHINYL ESTRADIOL
  14. ERGOCALCIFEROL. [Concomitant]
     Active Substance: ERGOCALCIFEROL
  15. IBUPROFEN. [Concomitant]
     Active Substance: IBUPROFEN
  16. ZOPICLONE [Concomitant]
     Active Substance: ZOPICLONE
  17. ACTEMRA [Suspect]
     Active Substance: TOCILIZUMAB
  18. ORENCIA [Suspect]
     Active Substance: ABATACEPT
     Dosage: UNK
  19. SIMPONI [Suspect]
     Active Substance: GOLIMUMAB
     Route: 058
  20. CHLORAPREP [Suspect]
     Active Substance: CHLORHEXIDINE GLUCONATE\ISOPROPYL ALCOHOL
     Route: 061
  21. CIMZIA [Suspect]
     Active Substance: CERTOLIZUMAB PEGOL
     Dosage: 4000 MG
     Route: 058
  22. METHOTREXATE. [Suspect]
     Active Substance: METHOTREXATE
  23. D-ALPHA TOCOPHEROL [Concomitant]
     Active Substance: .ALPHA.-TOCOPHEROL, D-
  24. REACTINE [Concomitant]
  25. VENTOLIN [Concomitant]
     Active Substance: ALBUTEROL SULFATE
  26. LEFLUNOMIDE. [Suspect]
     Active Substance: LEFLUNOMIDE
     Dosage: UNK
  27. COENZYME Q10 [Concomitant]
     Active Substance: DIETARY SUPPLEMENT\UBIDECARENONE
  28. DESOGESTREL [Concomitant]
     Active Substance: DESOGESTREL
  29. HYDROXYCHLOROQUINE [Concomitant]
     Active Substance: HYDROXYCHLOROQUINE
  30. PANTOPRAZOLE [Concomitant]
     Active Substance: PANTOPRAZOLE
  31. TYLENOL [Concomitant]
     Active Substance: ACETAMINOPHEN
  32. ACETAMINOPHEN/OXYCODONE [Suspect]
     Active Substance: ACETAMINOPHEN\OXYCODONE HYDROCHLORIDE
  33. CIMZIA [Suspect]
     Active Substance: CERTOLIZUMAB PEGOL
     Indication: RHEUMATOID ARTHRITIS
     Dosage: 400 MG
     Route: 058
  34. ENBREL [Suspect]
     Active Substance: ETANERCEPT
     Dosage: UNK
     Route: 058
  35. HYDROXYCHLOROQUINE SULFATE. [Concomitant]
     Active Substance: HYDROXYCHLOROQUINE SULFATE
  36. VITAMIN C [Concomitant]
     Active Substance: ASCORBIC ACID
  37. CHLORHEXIDINE [Suspect]
     Active Substance: CHLORHEXIDINE
  38. CIMZIA [Suspect]
     Active Substance: CERTOLIZUMAB PEGOL
     Dosage: 200 MG
     Route: 058
  39. ENBREL [Suspect]
     Active Substance: ETANERCEPT
     Indication: RHEUMATOID ARTHRITIS
     Dosage: UNK

REACTIONS (21)
  - Asthenia [Unknown]
  - Headache [Unknown]
  - Night sweats [Unknown]
  - Vomiting [Unknown]
  - Muscle spasticity [Unknown]
  - Pain [Unknown]
  - Sinusitis [Unknown]
  - Back pain [Unknown]
  - Respiratory disorder [Unknown]
  - Urticaria [Unknown]
  - Body temperature increased [Unknown]
  - Insomnia [Unknown]
  - Peripheral swelling [Unknown]
  - Lower respiratory tract infection [Unknown]
  - Intentional product use issue [Unknown]
  - Joint swelling [Unknown]
  - Pruritus [Unknown]
  - Rash [Unknown]
  - Ear pain [Unknown]
  - Abdominal pain [Unknown]
  - Diarrhoea [Unknown]
